FAERS Safety Report 9660623 (Version 1)
Quarter: 2013Q4

REPORT INFORMATION
  Report Type: Spontaneous
  Country: US (occurrence: US)
  Receive Date: 20131031
  Receipt Date: 20131031
  Transmission Date: 20140711
  Serious: Yes (Other)
  Sender: FDA-Public Use
  Company Number: US-BAYER-2013-132571

PATIENT
  Sex: Female

DRUGS (3)
  1. ALEVE TABLET [Suspect]
     Indication: ARTHRITIS
     Dosage: 1 DF, UNK
  2. ALEVE TABLET [Suspect]
     Indication: ARTHRITIS
     Dosage: UNK
  3. ALEVE CAPLET [Suspect]
     Indication: ARTHRITIS

REACTIONS (1)
  - Ulcer [None]
